FAERS Safety Report 4812126-9 (Version None)
Quarter: 2005Q4

REPORT INFORMATION
  Report Type: 
  Country: None (occurrence: None)
  Receive Date: 20051028
  Receipt Date: 20040421
  Transmission Date: 20060501
  Serious: No
  Sender: FDA-Public Use
  Company Number: US-GLAXOSMITHKLINE-A0508015A

PATIENT
  Age: 53 Year
  Sex: Female
  Weight: 52.3 kg

DRUGS (6)
  1. ADVAIR DISKUS 100/50 [Suspect]
     Indication: ASTHMA
     Route: 055
     Dates: start: 20030701
  2. SEREVENT [Suspect]
     Indication: ASTHMA
     Route: 055
     Dates: end: 19970101
  3. ALBUTEROL [Suspect]
     Indication: ASTHMA
     Route: 055
  4. FLOVENT [Concomitant]
     Indication: ASTHMA
     Dosage: 110MCG TWICE PER DAY
     Route: 055
     Dates: start: 20040701
  5. ALLEGRA [Concomitant]
     Indication: ASTHMA
  6. STEROIDS [Concomitant]
     Indication: ASTHMA

REACTIONS (4)
  - DRUG INEFFECTIVE [None]
  - DYSPNOEA [None]
  - INSOMNIA [None]
  - MUSCULOSKELETAL CHEST PAIN [None]
